FAERS Safety Report 8764441 (Version 1)
Quarter: 2012Q4

REPORT INFORMATION
  Report Type: 
  Country: US (occurrence: US)
  Receive Date: 20120831
  Receipt Date: 20120831
  Transmission Date: 20130627
  Serious: No
  Sender: FDA-Public Use
  Company Number: US-PFIZER INC-2012211780

PATIENT
  Age: 72 Year
  Sex: Female
  Weight: 70.75 kg

DRUGS (4)
  1. PRISTIQ [Suspect]
     Indication: DEPRESSION
     Dosage: 50 mg, 1x/day
     Route: 048
     Dates: start: 201206, end: 201206
  2. PRISTIQ [Suspect]
     Dosage: 50 mg, alternate day
     Route: 048
     Dates: start: 201206, end: 2012
  3. PRISTIQ [Suspect]
     Dosage: 50 mg, after every three days
     Route: 048
     Dates: start: 2012, end: 201208
  4. FORTEO [Concomitant]
     Dosage: UNK

REACTIONS (13)
  - Drug ineffective [Not Recovered/Not Resolved]
  - Sweat gland disorder [Not Recovered/Not Resolved]
  - Chills [Not Recovered/Not Resolved]
  - Weight increased [Not Recovered/Not Resolved]
  - Vertigo [Not Recovered/Not Resolved]
  - Headache [Not Recovered/Not Resolved]
  - Hot flush [Not Recovered/Not Resolved]
  - Dizziness [Not Recovered/Not Resolved]
  - Anxiety [Not Recovered/Not Resolved]
  - Anger [Not Recovered/Not Resolved]
  - Agitation [Not Recovered/Not Resolved]
  - Depression [Not Recovered/Not Resolved]
  - Withdrawal syndrome [Not Recovered/Not Resolved]
